FAERS Safety Report 6997614-1 (Version None)
Quarter: 2010Q3

REPORT INFORMATION
  Report Type: 
  Country: None (occurrence: None)
  Receive Date: 20100918
  Receipt Date: 20091109
  Transmission Date: 20110219
  Serious: No
  Sender: FDA-Public Use
  Company Number: US-WYE-H12127409

PATIENT
  Age: 51 Year
  Sex: Female
  Weight: 59.02 kg

DRUGS (1)
  1. ADVIL PM [Suspect]
     Indication: INSOMNIA
     Route: 048
     Dates: start: 20091106, end: 20091107

REACTIONS (2)
  - DEPRESSION [None]
  - IRRITABILITY [None]
